FAERS Safety Report 7077417-2 (Version None)
Quarter: 2010Q4

REPORT INFORMATION
  Report Type: 
  Country: None (occurrence: None)
  Receive Date: 20101101
  Receipt Date: 20101022
  Transmission Date: 20110411
  Serious: Yes (Hospitalization)
  Sender: FDA-Public Use
  Company Number: US-BAYER-201022354BCC

PATIENT
  Sex: Female

DRUGS (1)
  1. PHILLIP'S [Suspect]
     Route: 065

REACTIONS (2)
  - CLOSTRIDIAL INFECTION [None]
  - WEIGHT DECREASED [None]
